FAERS Safety Report 8548502 (Version 7)
Quarter: 2012Q4

REPORT INFORMATION
  Report Type: 
  Country: DE (occurrence: DE)
  Receive Date: 20120507
  Receipt Date: 20121129
  Transmission Date: 20130627
  Serious: Yes (Hospitalization, Other)
  Sender: FDA-Public Use
  Company Number: PHHO2012DE006760

PATIENT
  Age: 65 Year
  Sex: Male
  Weight: 76.6 kg

DRUGS (11)
  1. PROGRAF [Suspect]
     Indication: RENAL TRANSPLANT
     Dosage: 2.5 mg, (2.0-0-0.1 mg)
     Route: 048
     Dates: start: 20120318, end: 20120427
  2. PROGRAF [Suspect]
     Dosage: 3.5 mg, (2.0-0-1.5 mg)
     Route: 048
  3. PROGRAF [Suspect]
     Dosage: 3.5 mg, (2.0-0-1.5 mg)
     Route: 048
  4. MYFORTIC [Suspect]
     Indication: RENAL TRANSPLANT
     Dosage: 360 mg, BID
     Route: 048
     Dates: start: 20120318, end: 20120502
  5. MYFORTIC [Suspect]
     Dosage: 360 mg, BID
     Route: 048
     Dates: end: 20120607
  6. MYFORTIC [Suspect]
     Dosage: 720 mg, BID
     Route: 048
     Dates: end: 20120618
  7. PREDNISONE [Suspect]
     Indication: RENAL TRANSPLANT
     Dosage: 20 mg, QD
     Route: 048
     Dates: start: 20120319, end: 20120502
  8. PREDNISONE [Suspect]
     Dosage: 15 mg, QD
     Route: 048
  9. PREDNISONE [Suspect]
     Dosage: 10 mg, QD
     Route: 048
  10. THYMOGLOBULINE [Suspect]
     Dosage: 75 mg, QD
     Route: 042
     Dates: start: 20120518
  11. SIMULECT [Concomitant]
     Indication: RENAL TRANSPLANT
     Dosage: 20 mg, UNK
     Route: 042
     Dates: start: 20120318

REACTIONS (3)
  - Kidney transplant rejection [Recovered/Resolved]
  - Wound infection staphylococcal [Recovered/Resolved with Sequelae]
  - Atrial fibrillation [Recovered/Resolved]
